FAERS Safety Report 17735709 (Version 1)
Quarter: 2020Q2

REPORT INFORMATION
  Report Type: Spontaneous
  Country: US (occurrence: US)
  Receive Date: 20200501
  Receipt Date: 20200501
  Transmission Date: 20200714
  Serious: Yes (Death, Hospitalization, Other)
  Sender: FDA-Public Use
  Company Number: US-BAYER-2020-068748

PATIENT
  Sex: Male

DRUGS (3)
  1. ADEMPAS [Suspect]
     Active Substance: RIOCIGUAT
     Indication: PULMONARY HYPERTENSION
     Dosage: 1 MG
     Route: 048
     Dates: start: 20190305, end: 20190310
  2. ADEMPAS [Suspect]
     Active Substance: RIOCIGUAT
     Indication: PULMONARY HYPERTENSION
     Dosage: 0.5 MG
     Dates: start: 20190311, end: 201903
  3. OXYGEN. [Concomitant]
     Active Substance: OXYGEN
     Dosage: 2 L
     Route: 055
     Dates: start: 201903, end: 202002

REACTIONS (7)
  - Urine flow decreased [None]
  - Dizziness [None]
  - Confusional state [None]
  - Hypotension [None]
  - Hypotension [None]
  - Cellulitis [None]
  - Hallucination [None]

NARRATIVE: CASE EVENT DATE: 201903
